FAERS Safety Report 5750285-4 (Version None)
Quarter: 2008Q2

REPORT INFORMATION
  Report Type: 
  Country: None (occurrence: None)
  Receive Date: 20080522
  Receipt Date: 20080522
  Transmission Date: 20081010
  Serious: Yes (Life-Threatening)
  Sender: FDA-Public Use
  Company Number: None

PATIENT
  Age: 87 Year
  Sex: Female
  Weight: 35.8342 kg

DRUGS (1)
  1. DIGHITEK .125 MCG. MYLAN [Suspect]
     Indication: HEART RATE IRREGULAR
     Dosage: 1 TABLET 1/DAY
     Dates: start: 20080303, end: 20080505

REACTIONS (6)
  - ARTHRALGIA [None]
  - ASTHENIA [None]
  - FALL [None]
  - NAUSEA [None]
  - POOR PERSONAL HYGIENE [None]
  - WEIGHT DECREASED [None]
